FAERS Safety Report 7922154-2 (Version None)
Quarter: 2011Q4

REPORT INFORMATION
  Report Type: 
  Country: None (occurrence: None)
  Receive Date: 20111117
  Receipt Date: 20110119
  Transmission Date: 20120403
  Serious: No
  Sender: FDA-Public Use
  Company Number: US-AMGEN-USASP2010012217

PATIENT
  Age: 64 Year
  Sex: Female
  Weight: 93.424 kg

DRUGS (2)
  1. METHOTREXATE [Concomitant]
     Dates: start: 19910101
  2. ENBREL [Suspect]
     Indication: RHEUMATOID ARTHRITIS
     Dosage: 25 MG, 2 TIMES/WK
     Route: 058
     Dates: start: 19980101

REACTIONS (12)
  - NAUSEA [None]
  - SINUSITIS [None]
  - INJECTION SITE HAEMATOMA [None]
  - WOUND INFECTION [None]
  - HELICOBACTER INFECTION [None]
  - LACERATION [None]
  - PRURITUS [None]
  - URINARY TRACT INFECTION [None]
  - SINUS DISORDER [None]
  - ASTHENIA [None]
  - INFECTION [None]
  - SNEEZING [None]
